FAERS Safety Report 15747169 (Version 1)
Quarter: 2018Q4

REPORT INFORMATION
  Report Type: Report from Study
  Country: US (occurrence: US)
  Receive Date: 20181220
  Receipt Date: 20181220
  Transmission Date: 20190205
  Serious: Yes (Other)
  Sender: FDA-Public Use
  Company Number: US-MYLANLABS-2018M1093668

PATIENT
  Age: 34 Year
  Sex: Male

DRUGS (1)
  1. TRAMADOL. [Suspect]
     Active Substance: TRAMADOL
     Indication: PRODUCT USED FOR UNKNOWN INDICATION
     Dosage: PRESCRIBED DOSE WAS 100MG
     Route: 048

REACTIONS (3)
  - Tachycardia [Unknown]
  - Seizure [Recovered/Resolved]
  - Extra dose administered [Recovering/Resolving]
